FAERS Safety Report 18755632 (Version 2)
Quarter: 2021Q1

REPORT INFORMATION
  Report Type: Report from Study
  Country: None (occurrence: AT)
  Receive Date: 20210119
  Receipt Date: 20210121
  Transmission Date: 20210419
  Serious: Yes (Hospitalization)
  Sender: FDA-Public Use
  Company Number: AT-ABBVIE-21K-009-3729078-00

PATIENT
  Sex: Female

DRUGS (2)
  1. DUODOPA [Suspect]
     Active Substance: CARBIDOPA\LEVODOPA
     Indication: PARKINSON^S DISEASE
     Dosage: 24HRS THERAPY: MD: 5ML, CR DAYTIME: 5.5ML/H, CR NIGHTTIME: 4.2ML/H, ED: 3.6ML
     Route: 050
     Dates: start: 20160112
  2. DUODOPA [Suspect]
     Active Substance: CARBIDOPA\LEVODOPA

REACTIONS (3)
  - Ileus [Recovering/Resolving]
  - Small intestinal resection [Recovering/Resolving]
  - Intussusception [Recovered/Resolved]
